FAERS Safety Report 7036265-X (Version None)
Quarter: 2010Q4

REPORT INFORMATION
  Report Type: 
  Country: None (occurrence: None)
  Receive Date: 20101008
  Receipt Date: 20100929
  Transmission Date: 20110411
  Serious: Yes (Hospitalization, Other)
  Sender: FDA-Public Use
  Company Number: SE-ABBOTT-10P-150-0672548-00

PATIENT
  Sex: Female

DRUGS (1)
  1. SIBUTRAMINE HYDROCHLORIDE MONOHYDRATE [Suspect]
     Indication: PRODUCT USED FOR UNKNOWN INDICATION
     Dates: end: 20100830

REACTIONS (7)
  - ANGIOEDEMA [None]
  - MASKED FACIES [None]
  - MUSCLE TWITCHING [None]
  - PARAESTHESIA [None]
  - PRODUCT COUNTERFEIT [None]
  - SYNCOPE [None]
  - TONSILLAR HYPERTROPHY [None]
